FAERS Safety Report 9527254 (Version 3)
Quarter: 2013Q4

REPORT INFORMATION
  Report Type: Spontaneous
  Country: US (occurrence: US)
  Receive Date: 20130917
  Receipt Date: 20131212
  Transmission Date: 20140711
  Serious: Yes (Hospitalization)
  Sender: FDA-Public Use
  Company Number: US-BIOGENIDEC-2013BI087447

PATIENT
  Sex: Male

DRUGS (1)
  1. AVONEX [Suspect]
     Indication: MULTIPLE SCLEROSIS
     Route: 030
     Dates: start: 20130426

REACTIONS (7)
  - Bladder cancer [Recovered/Resolved]
  - Procedural complication [Recovered/Resolved]
  - Heart valve incompetence [Unknown]
  - Gout [Unknown]
  - Urosepsis [Recovered/Resolved]
  - Pulmonary thrombosis [Unknown]
  - Escherichia infection [Unknown]
